FAERS Safety Report 20082482 (Version 4)
Quarter: 2021Q4

REPORT INFORMATION
  Report Type: Spontaneous
  Country: US (occurrence: US)
  Receive Date: 20211117
  Receipt Date: 20211124
  Transmission Date: 20220304
  Serious: Yes (Death, Hospitalization)
  Sender: FDA-Public Use
  Company Number: US-CELGENE-USA-20211104569

PATIENT
  Sex: Female

DRUGS (1)
  1. POMALYST [Suspect]
     Active Substance: POMALIDOMIDE
     Indication: Plasma cell myeloma
     Dosage: 4 MILLIGRAM
     Route: 048
     Dates: start: 20211008, end: 20211109

REACTIONS (4)
  - Acute respiratory distress syndrome [Fatal]
  - Septic shock [Fatal]
  - Febrile neutropenia [Fatal]
  - Pneumothorax [Fatal]

NARRATIVE: CASE EVENT DATE: 20211109
